FAERS Safety Report 6981892-9 (Version None)
Quarter: 2010Q3

REPORT INFORMATION
  Report Type: 
  Country: None (occurrence: None)
  Receive Date: 20100914
  Receipt Date: 20091125
  Transmission Date: 20110219
  Serious: No
  Sender: FDA-Public Use
  Company Number: US-PFIZER INC-2009273019

PATIENT
  Sex: Female
  Weight: 59.4 kg

DRUGS (4)
  1. LYRICA [Suspect]
     Indication: FIBROMYALGIA
     Dosage: UNK
     Route: 048
     Dates: start: 20090910, end: 20090917
  2. ADVAIR DISKUS 100/50 [Concomitant]
     Dosage: UNK
  3. FOSAMAX [Concomitant]
     Dosage: UNK
  4. LEXAPRO [Concomitant]
     Dosage: UNK

REACTIONS (5)
  - MENTAL IMPAIRMENT [None]
  - SOMNOLENCE [None]
  - URINARY INCONTINENCE [None]
  - URINARY RETENTION [None]
  - WEIGHT INCREASED [None]
